FAERS Safety Report 9273627 (Version 1)
Quarter: 2013Q2

REPORT INFORMATION
  Report Type: Spontaneous
  Country: US (occurrence: US)
  Receive Date: 20130506
  Receipt Date: 20130506
  Transmission Date: 20140414
  Serious: No
  Sender: FDA-Public Use
  Company Number: US-AMGEN-USASP2013029841

PATIENT
  Age: 69 Year
  Sex: Female

DRUGS (2)
  1. ENBREL [Suspect]
     Indication: RHEUMATOID ARTHRITIS
     Dosage: 50 MG, EVERY 2 WEEKS
     Dates: start: 20011001
  2. METHOTREXATE [Concomitant]
     Dosage: 17.5 MG, PER WEEK
     Route: 048
     Dates: start: 2001

REACTIONS (1)
  - Arthralgia [Not Recovered/Not Resolved]
